FAERS Safety Report 20664813 (Version 1)
Quarter: 2022Q2

REPORT INFORMATION
  Report Type: Report from Study
  Country: US (occurrence: US)
  Receive Date: 20220401
  Receipt Date: 20220401
  Transmission Date: 20220721
  Serious: Yes (Hospitalization, Other)
  Sender: FDA-Public Use
  Company Number: US-TAKEDA-2022TUS020395

PATIENT
  Sex: Female

DRUGS (2)
  1. ICATIBANT [Suspect]
     Active Substance: ICATIBANT ACETATE
     Indication: Hereditary angioedema
     Dosage: UNK
     Route: 058
  2. ICATIBANT [Suspect]
     Active Substance: ICATIBANT ACETATE
     Indication: Hereditary angioedema
     Dosage: UNK
     Route: 058

REACTIONS (13)
  - Multiple sclerosis [Unknown]
  - Crohn^s disease [Unknown]
  - Thyroidectomy [Unknown]
  - Appendicectomy [Unknown]
  - Cholecystectomy [Unknown]
  - Hysterectomy [Unknown]
  - Pemphigus [Unknown]
  - Oedema peripheral [Unknown]
  - Fatigue [Unknown]
  - Phobia [Unknown]
  - Goitre [Unknown]
  - Uterine neoplasm [Unknown]
  - Eye disorder [Unknown]
